FAERS Safety Report 8350755-9 (Version None)
Quarter: 2012Q2

REPORT INFORMATION
  Report Type: 
  Country: None (occurrence: None)
  Receive Date: 20120510
  Receipt Date: 20120503
  Transmission Date: 20120825
  Serious: Yes (Hospitalization, Congenital Anomaly)
  Sender: FDA-Public Use
  Company Number: US-GLAXOSMITHKLINE-A0976965A

PATIENT
  Sex: Female
  Weight: 1.6 kg

DRUGS (2)
  1. PAXIL [Suspect]
     Indication: DEPRESSION
     Dosage: 20MG PER DAY
     Route: 064
  2. PAXIL CR [Suspect]
     Indication: DEPRESSION
     Route: 064
     Dates: start: 20030129

REACTIONS (2)
  - FOETAL EXPOSURE DURING PREGNANCY [None]
  - COR TRIATRIATUM [None]
